FAERS Safety Report 10654893 (Version 1)
Quarter: 2014Q4

REPORT INFORMATION
  Report Type: Spontaneous
  Country: US (occurrence: None)
  Receive Date: 20141215
  Receipt Date: 20141215
  Transmission Date: 20150529
  Serious: Yes (Life-Threatening, Disabling)
  Sender: FDA-Public Use
  Company Number: None

PATIENT
  Age: 46 Year
  Sex: Female
  Weight: 65.77 kg

DRUGS (2)
  1. GABAPENTIN. [Suspect]
     Active Substance: GABAPENTIN
     Indication: NEURALGIA
     Dosage: 1 PILL
     Route: 048
     Dates: start: 20141012, end: 20141117
  2. GABAPENTIN. [Suspect]
     Active Substance: GABAPENTIN
     Indication: SPINAL COLUMN STENOSIS
     Dosage: 1 PILL
     Route: 048
     Dates: start: 20141012, end: 20141117

REACTIONS (5)
  - Road traffic accident [None]
  - Multiple injuries [None]
  - Intervertebral disc protrusion [None]
  - Sudden onset of sleep [None]
  - Narcolepsy [None]

NARRATIVE: CASE EVENT DATE: 20141104
